FAERS Safety Report 8207514-7 (Version None)
Quarter: 2012Q1

REPORT INFORMATION
  Report Type: 
  Country: None (occurrence: None)
  Receive Date: 20120313
  Receipt Date: 20120313
  Transmission Date: 20120608
  Serious: Yes (Hospitalization)
  Sender: FDA-Public Use
  Company Number: None

PATIENT
  Sex: Female

DRUGS (1)
  1. ENBREL [Suspect]
     Indication: RHEUMATOID ARTHRITIS
     Dosage: ENBREL SURECLICK 50MG ONE SC QWK SC
     Route: 058
     Dates: start: 20100408, end: 20120204

REACTIONS (5)
  - HYPOAESTHESIA [None]
  - HEADACHE [None]
  - TINNITUS [None]
  - MENTAL DISORDER [None]
  - CEREBRAL DISORDER [None]
